FAERS Safety Report 19924311 (Version 4)
Quarter: 2023Q2

REPORT INFORMATION
  Report Type: Report from Study
  Country: KR (occurrence: KR)
  Receive Date: 20211006
  Receipt Date: 20230504
  Transmission Date: 20230722
  Serious: Yes (Hospitalization)
  Sender: FDA-Public Use
  Company Number: KR-GLAXOSMITHKLINE-KR2021204882

PATIENT

DRUGS (14)
  1. DOSTARLIMAB [Suspect]
     Active Substance: DOSTARLIMAB
     Indication: Non-small cell lung cancer
     Dosage: DOSE AT CYCLE 1 - DAY 1
     Route: 042
     Dates: start: 20210507, end: 20210507
  2. DOSTARLIMAB [Suspect]
     Active Substance: DOSTARLIMAB
     Dosage: DOSE AT DAY 1
     Route: 042
     Dates: start: 20210526, end: 20210526
  3. DOSTARLIMAB [Suspect]
     Active Substance: DOSTARLIMAB
     Dosage: DOSE AT DAY 1
     Route: 042
     Dates: start: 20210616, end: 20210616
  4. DOSTARLIMAB [Suspect]
     Active Substance: DOSTARLIMAB
     Dosage: DOSE AT DAY 1
     Route: 042
     Dates: start: 20210707, end: 20210707
  5. DOSTARLIMAB [Suspect]
     Active Substance: DOSTARLIMAB
     Dosage: DOSE AT DAY 1
     Route: 042
     Dates: start: 20210728, end: 20210728
  6. DOSTARLIMAB [Suspect]
     Active Substance: DOSTARLIMAB
     Dosage: DOSE AT DAY 1
     Route: 042
     Dates: start: 20210818, end: 20210818
  7. DOSTARLIMAB [Suspect]
     Active Substance: DOSTARLIMAB
     Dosage: DOSE AT DAY 1
     Route: 042
     Dates: start: 20210908, end: 20210908
  8. DOCETAXEL [Suspect]
     Active Substance: DOCETAXEL
     Indication: Non-small cell lung cancer
     Dosage: DOSE AT CYCLE 1 - DAY 1
     Route: 042
     Dates: start: 20210507, end: 20210507
  9. DOCETAXEL [Suspect]
     Active Substance: DOCETAXEL
     Dosage: DOSE AT DAY 1
     Route: 042
     Dates: start: 20210526, end: 20210526
  10. DOCETAXEL [Suspect]
     Active Substance: DOCETAXEL
     Dosage: DOSE AT DAY 1
     Route: 042
     Dates: start: 20210616, end: 20210616
  11. DOCETAXEL [Suspect]
     Active Substance: DOCETAXEL
     Dosage: DOSE AT DAY 1
     Route: 042
     Dates: start: 20210707, end: 20210707
  12. DOCETAXEL [Suspect]
     Active Substance: DOCETAXEL
     Dosage: DOSE AT DAY 1
     Route: 042
     Dates: start: 20210728, end: 20210728
  13. DOCETAXEL [Suspect]
     Active Substance: DOCETAXEL
     Dosage: DOSE AT DAY 1
     Route: 042
     Dates: start: 20210818, end: 20210818
  14. DOCETAXEL [Suspect]
     Active Substance: DOCETAXEL
     Dosage: DOSE AT DAY 1
     Route: 042
     Dates: start: 20210908, end: 20210908

REACTIONS (1)
  - Pneumonia [Recovered/Resolved]

NARRATIVE: CASE EVENT DATE: 20210929
